FAERS Safety Report 13407404 (Version 1)
Quarter: 2017Q2

REPORT INFORMATION
  Report Type: Spontaneous
  Country: US (occurrence: US)
  Receive Date: 20170405
  Receipt Date: 20170405
  Transmission Date: 20170830
  Serious: Yes (Hospitalization, Other)
  Sender: FDA-Public Use
  Company Number: US-IMPAX LABORATORIES, INC-2017-IPXL-00802

PATIENT
  Age: 23 Year
  Sex: Male

DRUGS (8)
  1. DIPHENHYDRAMINE. [Suspect]
     Active Substance: DIPHENHYDRAMINE
     Indication: OVERDOSE
     Dosage: UNK
     Route: 065
  2. NALOXONE [Suspect]
     Active Substance: NALOXONE
     Indication: PRODUCT USED FOR UNKNOWN INDICATION
     Dosage: 4 MG, UNK
     Route: 042
  3. FENTANYL. [Suspect]
     Active Substance: FENTANYL
     Indication: OVERDOSE
     Dosage: UNK
     Route: 065
  4. CODEINE [Suspect]
     Active Substance: CODEINE
     Indication: OVERDOSE
     Dosage: UNK
     Route: 065
  5. QUININE [Suspect]
     Active Substance: QUININE
     Indication: OVERDOSE
     Dosage: UNK
     Route: 065
  6. GALANTAMINE HYDROBROMIDE ER [Suspect]
     Active Substance: GALANTAMINE HYDROBROMIDE
     Indication: OVERDOSE
     Dosage: UNK
     Route: 065
  7. OXYCODONE HYDROCHLORIDE. [Suspect]
     Active Substance: OXYCODONE HYDROCHLORIDE
     Indication: OVERDOSE
     Dosage: UNK
     Route: 065
  8. COCAINE [Suspect]
     Active Substance: COCAINE
     Indication: OVERDOSE
     Dosage: UNK
     Route: 065

REACTIONS (9)
  - Compartment syndrome [Unknown]
  - Agitation [Unknown]
  - Cholinergic syndrome [Unknown]
  - Overdose [Unknown]
  - Drug withdrawal syndrome [Unknown]
  - Toxicity to various agents [Unknown]
  - Unresponsive to stimuli [Unknown]
  - Renal failure [Unknown]
  - Sinus tachycardia [Unknown]
